FAERS Safety Report 7280619-3 (Version None)
Quarter: 2011Q1

REPORT INFORMATION
  Report Type: 
  Country: None (occurrence: None)
  Receive Date: 20110208
  Receipt Date: 20110204
  Transmission Date: 20110831
  Serious: Yes (Other)
  Sender: FDA-Public Use
  Company Number: US-PFIZER INC-2011009243

PATIENT
  Sex: Female
  Weight: 64.399 kg

DRUGS (5)
  1. SOMA [Suspect]
     Indication: MUSCLE RELAXANT THERAPY
     Dosage: UNK
     Route: 048
  2. LYRICA [Suspect]
     Dosage: 75 MG, 1 CAPSULES IN THE MORNING, 2 CAPSULES AT NIGHT
     Dates: end: 20100901
  3. LEVOTHYROXINE [Concomitant]
     Indication: HYPOTHYROIDISM
     Dosage: 100 UG, 1X/DAY
     Route: 048
  4. ZOCOR [Concomitant]
     Indication: BLOOD CHOLESTEROL INCREASED
     Dosage: 20 MG, 1X/DAY
     Route: 048
  5. LYRICA [Suspect]
     Indication: FIBROMYALGIA
     Dosage: 50 MG, 2X/DAY
     Route: 048

REACTIONS (12)
  - ILL-DEFINED DISORDER [None]
  - PANIC ATTACK [None]
  - SOMNOLENCE [None]
  - MUSCLE SPASMS [None]
  - MUSCULOSKELETAL STIFFNESS [None]
  - OEDEMA PERIPHERAL [None]
  - ASTHENIA [None]
  - FALL [None]
  - VISUAL ACUITY REDUCED [None]
  - HEAD INJURY [None]
  - FACIAL BONES FRACTURE [None]
  - RESTLESSNESS [None]
